FAERS Safety Report 17184480 (Version 1)
Quarter: 2019Q4

REPORT INFORMATION
  Report Type: Spontaneous
  Country: US (occurrence: US)
  Receive Date: 20191127
  Receipt Date: 20191127
  Transmission Date: 20200122
  Serious: Yes (Hospitalization)
  Sender: FDA-Public Use
  Company Number: None

PATIENT
  Age: 1 Year
  Sex: Male
  Weight: 14.9 kg

DRUGS (3)
  1. VINCRISTINE SULFATE. [Concomitant]
     Active Substance: VINCRISTINE SULFATE
     Dates: end: 20191028
  2. CYTARABINE (63878) [Suspect]
     Active Substance: CYTARABINE
     Dates: end: 20191025
  3. DEXAMETHASON [Concomitant]
     Active Substance: DEXAMETHASONE
     Dates: end: 20191028

REACTIONS (2)
  - Pyrexia [None]
  - Neutropenia [None]

NARRATIVE: CASE EVENT DATE: 20191029
